FAERS Safety Report 6168711-8 (Version None)
Quarter: 2009Q2

REPORT INFORMATION
  Report Type: 
  Country: None (occurrence: None)
  Receive Date: 20090427
  Receipt Date: 20090422
  Transmission Date: 20091009
  Serious: Yes (Death)
  Sender: FDA-Public Use
  Company Number: RO-ABBOTT-09P-135-0569405-00

PATIENT
  Age: 50 Year
  Sex: Male

DRUGS (3)
  1. HUMIRA [Suspect]
     Indication: PSORIASIS
     Route: 058
     Dates: start: 20090201, end: 20090401
  2. TRANXENE [Concomitant]
     Indication: DEPRESSION
  3. COAXIL [Concomitant]
     Indication: DEPRESSION

REACTIONS (1)
  - COMPLETED SUICIDE [None]
